FAERS Safety Report 16170976 (Version 1)
Quarter: 2019Q2

REPORT INFORMATION
  Report Type: Spontaneous
  Country: US (occurrence: US)
  Receive Date: 20190408
  Receipt Date: 20190408
  Transmission Date: 20190711
  Serious: Yes (Hospitalization)
  Sender: FDA-Public Use
  Company Number: PHHY2019US078918

PATIENT
  Age: 49 Year
  Sex: Female

DRUGS (1)
  1. TASIGNA [Suspect]
     Active Substance: NILOTINIB
     Indication: CHRONIC MYELOID LEUKAEMIA
     Route: 065

REACTIONS (14)
  - Fatigue [Unknown]
  - Troponin I increased [Unknown]
  - Dizziness [Unknown]
  - Dysarthria [Unknown]
  - Dyspnoea exertional [Unknown]
  - Transient ischaemic attack [Unknown]
  - Hypoaesthesia [Unknown]
  - Red blood cell sedimentation rate increased [Unknown]
  - Coronary artery disease [Unknown]
  - Moyamoya disease [Unknown]
  - Muscular weakness [Unknown]
  - Acute myocardial infarction [Unknown]
  - C-reactive protein increased [Unknown]
  - Vasculitis [Unknown]
